FAERS Safety Report 7491477-6 (Version None)
Quarter: 2011Q2

REPORT INFORMATION
  Report Type: 
  Country: None (occurrence: None)
  Receive Date: 20110519
  Receipt Date: 20110513
  Transmission Date: 20111010
  Serious: Yes (Hospitalization)
  Sender: FDA-Public Use
  Company Number: PHHO2011US07061

PATIENT
  Sex: Male
  Weight: 81.8 kg

DRUGS (3)
  1. AFINITOR [Suspect]
     Dosage: 5 MG, DAILY
     Route: 048
     Dates: start: 20110318, end: 20110419
  2. AVALIDE [Concomitant]
     Indication: HYPERTENSION
     Dosage: 300/25 MG, DAILY
     Route: 048
     Dates: start: 20090701, end: 20110421
  3. AFINITOR [Suspect]
     Indication: MANTLE CELL LYMPHOMA REFRACTORY
     Dosage: UNK MG, QD
     Route: 048
     Dates: start: 20110128

REACTIONS (2)
  - PNEUMONITIS [None]
  - ORTHOSTATIC HYPOTENSION [None]
